FAERS Safety Report 19116122 (Version 1)
Quarter: 2021Q2

REPORT INFORMATION
  Report Type: Report from Study
  Country: PE (occurrence: PE)
  Receive Date: 20210409
  Receipt Date: 20210409
  Transmission Date: 20210717
  Serious: Yes (Other)
  Sender: FDA-Public Use
  Company Number: NVSC2021PE076136

PATIENT
  Age: 46 Year
  Sex: Female

DRUGS (1)
  1. REVOLADE [Suspect]
     Active Substance: ELTROMBOPAG OLAMINE
     Indication: IMMUNE THROMBOCYTOPENIA
     Dosage: 50 MG, QD
     Route: 048
     Dates: start: 20170405

REACTIONS (12)
  - Cough [Unknown]
  - COVID-19 [Unknown]
  - Abdominal discomfort [Unknown]
  - Muscular weakness [Unknown]
  - Dry mouth [Unknown]
  - Pain [Unknown]
  - Pyrexia [Unknown]
  - Anosmia [Unknown]
  - Haemorrhage [Unknown]
  - Immune system disorder [Unknown]
  - Malaise [Unknown]
  - Asthenia [Unknown]

NARRATIVE: CASE EVENT DATE: 202103
